FAERS Safety Report 11095882 (Version 1)
Quarter: 2015Q2

REPORT INFORMATION
  Report Type: Spontaneous
  Country: US (occurrence: US)
  Receive Date: 20150507
  Receipt Date: 20150507
  Transmission Date: 20150821
  Serious: Yes (Other)
  Sender: FDA-Public Use
  Company Number: US-SUN PHARMACEUTICAL INDUSTRIES LTD-2015SUN01060

PATIENT
  Age: 56 Year
  Sex: Female

DRUGS (7)
  1. LITHIUM CARBONATE TABLETS, USP 300MG [Suspect]
     Active Substance: LITHIUM CARBONATE
     Dosage: DOSE DECREASED TO 300 MG DAILY DURING DIALYSIS
     Route: 065
  2. MYCOPHENOLATE MOFETIL. [Concomitant]
     Active Substance: MYCOPHENOLATE MOFETIL
     Indication: IMMUNOSUPPRESSION
  3. LITHIUM CARBONATE TABLETS, USP 300MG [Suspect]
     Active Substance: LITHIUM CARBONATE
     Indication: BIPOLAR DISORDER
     Dosage: UNK
     Route: 065
  4. LITHIUM CARBONATE TABLETS, USP 300MG [Suspect]
     Active Substance: LITHIUM CARBONATE
     Dosage: AT PRETRANSPLANT DOSE
     Route: 065
  5. METHYLPREDNISOLONE. [Concomitant]
     Active Substance: METHYLPREDNISOLONE
     Indication: IMMUNOSUPPRESSION
     Dosage: RAPID TAPER
  6. TACROLIMUS. [Concomitant]
     Active Substance: TACROLIMUS
     Indication: IMMUNOSUPPRESSION
  7. ALEMTUZUMAB [Concomitant]
     Active Substance: ALEMTUZUMAB
     Indication: IMMUNOSUPPRESSION
     Dosage: UNK, SINGLE

REACTIONS (8)
  - Tremor [Recovering/Resolving]
  - Mental status changes [Recovering/Resolving]
  - Hyperreflexia [Recovering/Resolving]
  - Nausea [Recovering/Resolving]
  - Bipolar disorder [Recovering/Resolving]
  - Toxicity to various agents [Recovering/Resolving]
  - Aphasia [Recovering/Resolving]
  - Diarrhoea [Recovering/Resolving]
